FAERS Safety Report 5590654-9 (Version None)
Quarter: 2008Q1

REPORT INFORMATION
  Report Type: 
  Country: None (occurrence: None)
  Receive Date: 20080114
  Receipt Date: 20080109
  Transmission Date: 20080703
  Serious: Yes (Life-Threatening)
  Sender: FDA-Public Use
  Company Number: JP-MERCK-0509USA00866

PATIENT
  Age: 55 Year
  Sex: Male
  Weight: 45 kg

DRUGS (7)
  1. COZAAR [Suspect]
     Indication: HYPERTENSION
     Route: 048
     Dates: start: 20000101, end: 20050816
  2. BAYLOTENSIN [Concomitant]
     Indication: HYPERTENSION
     Route: 048
     Dates: start: 20000101, end: 20050816
  3. URSO 250 [Concomitant]
     Indication: LIVER DISORDER
     Route: 048
     Dates: start: 20000101, end: 20050816
  4. SELBEX [Concomitant]
     Indication: PROPHYLAXIS AGAINST GASTROINTESTINAL ULCER
     Route: 048
     Dates: start: 20000101, end: 20050816
  5. CARNACULIN [Concomitant]
     Indication: RETINITIS
     Route: 048
     Dates: start: 20050727, end: 20050816
  6. DASEN [Concomitant]
     Indication: RETINITIS
     Route: 048
     Dates: start: 20050727, end: 20050816
  7. CYANOCOBALAMIN [Concomitant]
     Indication: RETINITIS
     Route: 048
     Dates: start: 20050727, end: 20050816

REACTIONS (2)
  - HYPOGLYCAEMIA [None]
  - RETINITIS [None]
